FAERS Safety Report 23538404 (Version 1)
Quarter: 2024Q1

REPORT INFORMATION
  Report Type: Other
  Country: US (occurrence: None)
  Receive Date: 20240219
  Receipt Date: 20240219
  Transmission Date: 20240410
  Serious: Yes (Other)
  Sender: FDA-Public Use
  Company Number: US-ROCHE-2789262

PATIENT
  Age: 70 Year
  Sex: Female

DRUGS (6)
  1. ACTEMRA [Suspect]
     Active Substance: TOCILIZUMAB
     Indication: Polymyalgia rheumatica
     Dosage: INJECT 162MG SUBCUTANEOUSLY EVERY 7 DAY(S)
     Route: 058
  2. ACTEMRA [Suspect]
     Active Substance: TOCILIZUMAB
  3. ACTEMRA [Suspect]
     Active Substance: TOCILIZUMAB
     Indication: Arteritis
  4. ACTEMRA [Suspect]
     Active Substance: TOCILIZUMAB
  5. ROSUVASTATIN [Suspect]
     Active Substance: ROSUVASTATIN
     Indication: Product used for unknown indication
     Route: 065
  6. LOSARTAN [Concomitant]
     Active Substance: LOSARTAN

REACTIONS (9)
  - Dyspnoea [Unknown]
  - Alopecia [Unknown]
  - Myalgia [Unknown]
  - Pain [Unknown]
  - Off label use [Unknown]
  - Discomfort [Unknown]
  - Limb discomfort [Unknown]
  - Hypertension [Unknown]
  - Hip arthroplasty [Unknown]
